FAERS Safety Report 4888793-0 (Version None)
Quarter: 2006Q1

REPORT INFORMATION
  Report Type: 
  Country: None (occurrence: None)
  Receive Date: 20060123
  Receipt Date: 20041228
  Transmission Date: 20060701
  Serious: Yes (Life-Threatening, Hospitalization, Other)
  Sender: FDA-Public Use
  Company Number: US-MERCK-0412USA03166

PATIENT
  Sex: Male
  Weight: 91 kg

DRUGS (1)
  1. VIOXX [Suspect]
     Indication: TOOTHACHE
     Route: 048
     Dates: start: 20031106, end: 20031117

REACTIONS (7)
  - ARTERIOSCLEROSIS [None]
  - CARDIAC DISORDER [None]
  - CORONARY ARTERY DISEASE [None]
  - CORONARY ARTERY OCCLUSION [None]
  - DIABETES MELLITUS [None]
  - FEELING ABNORMAL [None]
  - SILENT MYOCARDIAL INFARCTION [None]
